FAERS Safety Report 5697707-5 (Version None)
Quarter: 2008Q2

REPORT INFORMATION
  Report Type: 
  Country: None (occurrence: None)
  Receive Date: 20080408
  Receipt Date: 20080328
  Transmission Date: 20081010
  Serious: Yes (Other)
  Sender: FDA-Public Use
  Company Number: B0496879A

PATIENT
  Age: 39 Year
  Sex: Female

DRUGS (2)
  1. TYKERB [Suspect]
     Dosage: 1250MG PER DAY
     Route: 048
     Dates: start: 20070508
  2. CAPECITABINE [Concomitant]
     Dosage: 3000MG PER DAY
     Route: 065

REACTIONS (2)
  - CARDIOTOXICITY [None]
  - EJECTION FRACTION DECREASED [None]
